FAERS Safety Report 24917973 (Version 1)
Quarter: 2025Q1

REPORT INFORMATION
  Report Type: Spontaneous
  Country: GB (occurrence: GB)
  Receive Date: 20250203
  Receipt Date: 20250203
  Transmission Date: 20250409
  Serious: Yes (Other)
  Sender: GE HEALTHCARE
  Company Number: None

PATIENT
  Age: 26 Year

DRUGS (1)
  1. OMNIPAQUE [Suspect]
     Active Substance: IOHEXOL
     Indication: Computerised tomogram
     Route: 065

REACTIONS (4)
  - Dysphagia [Recovered/Resolved]
  - Periorbital swelling [Recovered/Resolved]
  - Sneezing [Recovered/Resolved]
  - Urticaria [Recovered/Resolved]
